FAERS Safety Report 9328869 (Version 2)
Quarter: 2014Q2

REPORT INFORMATION
  Report Type: Spontaneous
  Country: US (occurrence: US)
  Receive Date: 20130604
  Receipt Date: 20140524
  Transmission Date: 20141212
  Serious: No
  Sender: FDA-Public Use
  Company Number: US-SANOFI-AVENTIS-2013SA018775

PATIENT
  Age: 70 Year
  Sex: Female

DRUGS (3)
  1. LANTUS SOLOSTAR [Suspect]
     Indication: TYPE 2 DIABETES MELLITUS
     Dosage: TAKING AT 10:30 PM DOSE:15 UNIT(S)
     Route: 051
     Dates: start: 20130213
  2. SOLOSTAR [Concomitant]
     Indication: TYPE 2 DIABETES MELLITUS
  3. GLIPIZIDE [Concomitant]

REACTIONS (6)
  - Musculoskeletal stiffness [Unknown]
  - Fall [Unknown]
  - Limb injury [Unknown]
  - Pain in extremity [Unknown]
  - Blood glucose increased [Unknown]
  - Incorrect product storage [Unknown]
